FAERS Safety Report 5674952-6 (Version None)
Quarter: 2008Q1

REPORT INFORMATION
  Report Type: 
  Country: None (occurrence: None)
  Receive Date: 20080320
  Receipt Date: 20080318
  Transmission Date: 20080703
  Serious: Yes (Hospitalization, Other)
  Sender: FDA-Public Use
  Company Number: US-PFIZER INC-2007089360

PATIENT
  Sex: Male
  Weight: 97.5 kg

DRUGS (14)
  1. CP-195,543-90 [Suspect]
     Indication: RHEUMATOID ARTHRITIS
     Dosage: TEXT:UD: 5 CAPS-FREQ:FREQUENCY: BID; INTERVAL: QD
     Route: 048
     Dates: start: 20071010, end: 20071022
  2. CELECOXIB [Suspect]
     Indication: RHEUMATOID ARTHRITIS
     Route: 048
     Dates: start: 20071010, end: 20071022
  3. CELEBREX [Concomitant]
     Route: 048
     Dates: start: 20070801, end: 20071007
  4. METHOTREXATE [Concomitant]
     Route: 048
     Dates: start: 20070601
  5. FOLIC ACID [Concomitant]
     Route: 048
     Dates: start: 20070401
  6. NEXIUM [Concomitant]
     Route: 048
     Dates: start: 20020101
  7. PREDNISONE TAB [Concomitant]
     Route: 048
     Dates: start: 20070827
  8. PROPRANOLOL HYDROCHLORIDE [Concomitant]
     Route: 048
     Dates: start: 19970101
  9. LEXAPRO [Concomitant]
     Route: 048
     Dates: start: 20060101
  10. CRESTOR [Concomitant]
     Route: 048
  11. CALCIUM [Concomitant]
     Route: 048
     Dates: start: 20070101
  12. ALBUTEROL [Concomitant]
     Route: 055
     Dates: start: 20000101
  13. PLAVIX [Concomitant]
     Route: 048
     Dates: start: 20060101
  14. ASPIRIN [Concomitant]
     Route: 048
     Dates: start: 20060101

REACTIONS (3)
  - GASTROENTERITIS VIRAL [None]
  - PANCREATITIS ACUTE [None]
  - RENAL FAILURE ACUTE [None]
